FAERS Safety Report 16089833 (Version 1)
Quarter: 2019Q1

REPORT INFORMATION
  Report Type: Report from Study
  Country: IT (occurrence: IT)
  Receive Date: 20190319
  Receipt Date: 20190319
  Transmission Date: 20190418
  Serious: Yes (Hospitalization)
  Sender: FDA-Public Use
  Company Number: IT-PFIZER INC-2019112871

PATIENT
  Age: 73 Year
  Sex: Male

DRUGS (2)
  1. TYGACIL [Suspect]
     Active Substance: TIGECYCLINE
     Indication: KLEBSIELLA INFECTION
     Dosage: 2 DF, 1X/DAY
     Route: 042
     Dates: start: 20190207, end: 20190218
  2. GENTAMICINA SOLFATO ITALFARMACO [Suspect]
     Active Substance: GENTAMICIN SULFATE
     Indication: KLEBSIELLA INFECTION
     Dosage: 2 DF, 1X/DAY (80 MG/2 ML)
     Route: 042
     Dates: start: 20190207, end: 20190216

REACTIONS (1)
  - Acute kidney injury [Unknown]

NARRATIVE: CASE EVENT DATE: 20190219
